FAERS Safety Report 23937514 (Version 2)
Quarter: 2024Q2

REPORT INFORMATION
  Report Type: Spontaneous
  Country: CZ (occurrence: CZ)
  Receive Date: 20240604
  Receipt Date: 20240618
  Transmission Date: 20240716
  Serious: Yes (Other)
  Sender: FDA-Public Use
  Company Number: CZ-002147023-NVSC2024CZ115711

PATIENT
  Age: 47 Year
  Sex: Male

DRUGS (2)
  1. COSENTYX [Suspect]
     Active Substance: SECUKINUMAB
     Indication: Psoriasis
     Dosage: 300 MG, QMO (1X ONCE WEEKLY FOR 5 WEEKS, FOLLOWED BY 1X A MONTH)
     Route: 058
     Dates: start: 20230818, end: 2023
  2. COSENTYX [Suspect]
     Active Substance: SECUKINUMAB
     Dosage: 300 MG, QMO (1X ONCE WEEKLY FOR 5 WEEKS, FOLLOWED BY 1X A MONTH)
     Route: 058
     Dates: start: 2023

REACTIONS (10)
  - Osteochondrosis [Unknown]
  - Herpes ophthalmic [Unknown]
  - Psoriatic arthropathy [Unknown]
  - Limb discomfort [Recovered/Resolved]
  - Psoriasis [Recovering/Resolving]
  - Musculoskeletal stiffness [Unknown]
  - Syndesmophyte [Unknown]
  - Joint swelling [Unknown]
  - Visual analogue scale [Unknown]
  - C-reactive protein increased [Unknown]

NARRATIVE: CASE EVENT DATE: 20230920
